FAERS Safety Report 9425758 (Version 1)
Quarter: 2013Q3

REPORT INFORMATION
  Report Type: Spontaneous
  Country: FR (occurrence: FR)
  Receive Date: 20130729
  Receipt Date: 20130729
  Transmission Date: 20140515
  Serious: Yes (Hospitalization)
  Sender: FDA-Public Use
  Company Number: FR-WATSON-2013-13147

PATIENT
  Age: 76 Year
  Sex: Male

DRUGS (9)
  1. FLUCONAZOLE (UNKNOWN) [Suspect]
     Indication: FUNGAL INFECTION
     Dosage: 50 MG, UNKNOWN
     Route: 048
     Dates: start: 20110323, end: 20110328
  2. CEFTRIAXONE (UNKNOWN) [Suspect]
     Indication: BLOOD CULTURE POSITIVE
     Dosage: UNK, UNKNOWN
     Route: 042
     Dates: start: 20110325, end: 20110329
  3. VANCOMYCIN HYDROCHLORIDE (UNKNOWN) [Suspect]
     Indication: BLOOD CULTURE POSITIVE
     Dosage: UNK, UNKNOWN
     Route: 042
     Dates: start: 20110325, end: 20110325
  4. GENTAMICIN (UNKNOWN) [Suspect]
     Indication: BLOOD CULTURE POSITIVE
     Dosage: UNK, UNKNOWN
     Route: 042
     Dates: start: 20110325, end: 20110327
  5. METRONIDAZOLE (UNKNOWN) [Suspect]
     Indication: BACTERIAL INFECTION
     Dosage: UNK, UNKNOWN
     Route: 042
     Dates: start: 20110326, end: 20110330
  6. BACTRIM [Suspect]
     Indication: PNEUMOCYSTIS JIROVECII PNEUMONIA
     Dosage: UNK, UNKNOWN
     Route: 042
     Dates: start: 20110328, end: 20110409
  7. TAZOCILLINE [Suspect]
     Indication: PNEUMOCYSTIS JIROVECII PNEUMONIA
     Dosage: UNK, UNKNOWN
     Route: 042
     Dates: start: 20110330, end: 20110407
  8. CYMEVAN [Suspect]
     Indication: CYTOMEGALOVIRUS COLITIS
     Dosage: 300 MG, Q12H
     Route: 042
     Dates: start: 20110321, end: 20110401
  9. ROVAMYCINE /00074401/ [Suspect]
     Indication: ANTIFUNGAL PROPHYLAXIS
     Dosage: UNK, UNKNOWN
     Route: 042
     Dates: start: 20110328, end: 20110329

REACTIONS (1)
  - Bone marrow disorder [Recovered/Resolved]
